FAERS Safety Report 22163389 (Version 7)
Quarter: 2023Q2

REPORT INFORMATION
  Report Type: Report from Study
  Country: US (occurrence: US)
  Receive Date: 20230401
  Receipt Date: 20230619
  Transmission Date: 20230722
  Serious: No
  Sender: FDA-Public Use
  Company Number: US-002147023-NVSC2023US073576

PATIENT
  Age: 49 Year
  Sex: Female

DRUGS (8)
  1. KESIMPTA [Suspect]
     Active Substance: OFATUMUMAB
     Indication: Multiple sclerosis
     Dosage: 20 MG, QMO
     Route: 058
     Dates: start: 20230325, end: 20230607
  2. KESIMPTA [Suspect]
     Active Substance: OFATUMUMAB
     Dosage: 20 MG, QMO (INJECT 1 PEN (20MG) SUBCUTANEOUSLY MONTHLY STARTING AT WEEK 4 AS DIRECTED)
     Route: 058
  3. COLLAGEN [Concomitant]
     Active Substance: COLLAGEN
     Indication: Product used for unknown indication
     Dosage: UNK
     Route: 065
  4. FISH OIL [Concomitant]
     Active Substance: FISH OIL
     Indication: Product used for unknown indication
     Dosage: UNK
     Route: 065
  5. MAGNESIUM [Concomitant]
     Active Substance: MAGNESIUM
     Indication: Product used for unknown indication
     Dosage: UNK
     Route: 065
  6. ZINC GLUCONATE [Concomitant]
     Active Substance: ZINC GLUCONATE
     Indication: Product used for unknown indication
     Dosage: UNK
     Route: 065
  7. PANTOPRAZOLE SODIUM [Concomitant]
     Active Substance: PANTOPRAZOLE SODIUM
     Indication: Product used for unknown indication
     Dosage: UNK
     Route: 065
  8. CALCIUM OYSTER SHELL [Concomitant]
     Indication: Product used for unknown indication
     Dosage: UNK
     Route: 065

REACTIONS (13)
  - Head discomfort [Recovering/Resolving]
  - Gait disturbance [Recovering/Resolving]
  - Dry mouth [Unknown]
  - Hypoaesthesia [Not Recovered/Not Resolved]
  - Peripheral coldness [Unknown]
  - Electric shock [Not Recovered/Not Resolved]
  - Feeling cold [Not Recovered/Not Resolved]
  - Pain in extremity [Not Recovered/Not Resolved]
  - Arthralgia [Not Recovered/Not Resolved]
  - Chills [Unknown]
  - Dizziness [Unknown]
  - Abdominal pain upper [Recovering/Resolving]
  - Fatigue [Not Recovered/Not Resolved]

NARRATIVE: CASE EVENT DATE: 20230325
